FAERS Safety Report 8334864-6 (Version None)
Quarter: 2012Q2

REPORT INFORMATION
  Report Type: 
  Country: None (occurrence: None)
  Receive Date: 20120503
  Receipt Date: 20120426
  Transmission Date: 20120825
  Serious: Yes (Other)
  Sender: FDA-Public Use
  Company Number: US-TEVA-330091USA

PATIENT
  Sex: Male

DRUGS (15)
  1. ALPRAZOLAM [Concomitant]
  2. INSULIN GLARGINE [Concomitant]
  3. PERSISTA [Concomitant]
  4. VICODIN [Concomitant]
  5. AMLODIPINE [Concomitant]
  6. SILDENAFIL [Concomitant]
  7. PROGESTERONE [Concomitant]
  8. OMEPRAZOLE [Concomitant]
  9. DECANDROL [Concomitant]
  10. TRAZODONE HCL [Suspect]
     Indication: DEPRESSION
     Route: 048
     Dates: start: 20120319
  11. LORATADINE [Concomitant]
  12. BENAZEPRIL HYDROCHLORIDE [Concomitant]
  13. TRUVANG [Concomitant]
  14. RITONAVIR [Concomitant]
  15. TESTOSTERONE [Concomitant]

REACTIONS (5)
  - HAEMOPTYSIS [None]
  - FOREIGN BODY [None]
  - DYSPHAGIA [None]
  - CHOKING [None]
  - DIZZINESS [None]
